FAERS Safety Report 23794343 (Version 2)
Quarter: 2024Q3

REPORT INFORMATION
  Report Type: Other
  Country: IT (occurrence: IT)
  Receive Date: 20240429
  Receipt Date: 20240709
  Transmission Date: 20241016
  Serious: Yes (Hospitalization)
  Sender: AVEVA
  Company Number: IT-AVEVA-000634

PATIENT

DRUGS (2)
  1. BUPRENORPHINE [Suspect]
     Active Substance: BUPRENORPHINE
     Indication: Product used for unknown indication
     Dosage: UNK
     Route: 065
  2. BUPRENORPHINE [Suspect]
     Active Substance: BUPRENORPHINE
     Indication: Product used for unknown indication
     Dosage: NOR-BUPRENORPHINE
     Route: 065

REACTIONS (5)
  - Toxicity to various agents [Unknown]
  - Agitation [Unknown]
  - Somnolence [Unknown]
  - Miosis [Unknown]
  - Confusional state [Unknown]
